FAERS Safety Report 7625944-9 (Version None)
Quarter: 2011Q3

REPORT INFORMATION
  Report Type: 
  Country: None (occurrence: None)
  Receive Date: 20110713
  Receipt Date: 20110708
  Transmission Date: 20111222
  Serious: Yes (Death, Life-Threatening, Hospitalization)
  Sender: FDA-Public Use
  Company Number: 2011SP031792

PATIENT
  Age: 59 Year
  Sex: Male
  Weight: 48 kg

DRUGS (26)
  1. TEMODAL [Suspect]
     Dosage: 150 MG/M2;QD;IV ; 200 MG/M2;QD;IV ; 100 MG/2M;QD;IV
     Route: 042
     Dates: start: 20100705, end: 20100709
  2. TEMODAL [Suspect]
     Dosage: 150 MG/M2;QD;IV ; 200 MG/M2;QD;IV ; 100 MG/2M;QD;IV
     Route: 042
     Dates: start: 20100928, end: 20101105
  3. TEMODAL [Suspect]
     Dosage: 150 MG/M2;QD;IV ; 200 MG/M2;QD;IV ; 100 MG/2M;QD;IV
     Route: 042
     Dates: start: 20100607, end: 20110611
  4. COTRIM [Concomitant]
  5. PLAVIX [Concomitant]
  6. BIOFERMIN (LACTOMIN/AMYLOLYTIC BACILLUS) [Concomitant]
  7. ALEVIATIN [Concomitant]
  8. TRANSAMIN [Concomitant]
  9. UNASYN (SULBACTAM SODIUM) [Concomitant]
  10. 10 % SODIUM CHLORIDE [Concomitant]
  11. NEUTROGIN (LENOGRASTIM (GENETICAL RECOMBINATION)) [Concomitant]
  12. CEFOPERAZONE SODIUM [Concomitant]
  13. TEMODAL [Suspect]
     Indication: GLIOBLASTOMA MULTIFORME
     Dosage: PO
     Route: 048
     Dates: start: 20070120, end: 20091003
  14. BUFFERIN [Concomitant]
  15. ADONA (CARBAZOCHROME SODIUM SULFONATE HYDRATE) [Concomitant]
  16. SODIUM CHLORIDE [Concomitant]
  17. UNASYN (SULBACTAM SODIUM) [Concomitant]
  18. PENTCILLIN [Concomitant]
  19. PHENOBARBITAL TAB [Concomitant]
  20. DEPAKENE [Concomitant]
  21. ELEMENIC /01461301/ [Concomitant]
  22. TPN [Suspect]
     Indication: PRODUCT USED FOR UNKNOWN INDICATION
     Dosage: INDRP
     Route: 041
     Dates: start: 20100424, end: 20101122
  23. PLETAAL OD (CILOSTAZOL) [Concomitant]
  24. SEROTONE [Concomitant]
  25. ZOSYN (TAZOBACTAM) [Concomitant]
  26. LANSOPRAZOLE [Concomitant]

REACTIONS (5)
  - STRESS CARDIOMYOPATHY [None]
  - ERYTHROPENIA [None]
  - THROMBOCYTOPENIA [None]
  - LEUKOPENIA [None]
  - BLOOD ELECTROLYTES ABNORMAL [None]
